FAERS Safety Report 13213309 (Version 1)
Quarter: 2017Q1

REPORT INFORMATION
  Report Type: Spontaneous
  Country: IT (occurrence: IT)
  Receive Date: 20170210
  Receipt Date: 20170210
  Transmission Date: 20170428
  Serious: Yes (Other)
  Sender: FDA-Public Use
  Company Number: IT-ASTRAZENECA-2017SE13345

PATIENT
  Age: 24264 Day
  Sex: Female

DRUGS (5)
  1. FULVESTRANT [Suspect]
     Active Substance: FULVESTRANT
     Indication: BREAST CANCER FEMALE
     Dosage: 500 MG/CYCLIC
     Route: 030
     Dates: start: 20160621, end: 20161221
  2. ANTRA [Concomitant]
     Active Substance: OMEPRAZOLE
  3. TAD [Concomitant]
  4. SOLDESAM [Concomitant]
     Active Substance: DEXAMETHASONE
  5. XGEVA [Suspect]
     Active Substance: DENOSUMAB
     Indication: BREAST CANCER FEMALE
     Dosage: 120 MG/CYCLIC
     Route: 058
     Dates: start: 20160621, end: 20161221

REACTIONS (3)
  - Abdominal pain [Recovering/Resolving]
  - Asthenia [Recovering/Resolving]
  - Alopecia [Not Recovered/Not Resolved]

NARRATIVE: CASE EVENT DATE: 20170111
